FAERS Safety Report 6706651-3 (Version None)
Quarter: 2010Q2

REPORT INFORMATION
  Report Type: 
  Country: None (occurrence: None)
  Receive Date: 20100430
  Receipt Date: 20100430
  Transmission Date: 20101027
  Serious: Yes (Hospitalization)
  Sender: FDA-Public Use
  Company Number: None

PATIENT
  Sex: Male
  Weight: 98 kg

DRUGS (1)
  1. CYTARABINE [Suspect]
     Dosage: 38700 MG
     Dates: end: 20090103

REACTIONS (6)
  - ASPERGILLOSIS [None]
  - FEBRILE NEUTROPENIA [None]
  - HAEMORRHAGE [None]
  - HALLUCINATION, VISUAL [None]
  - PNEUMONIA [None]
  - STAPHYLOCOCCAL INFECTION [None]
